FAERS Safety Report 25950905 (Version 1)
Quarter: 2025Q4

REPORT INFORMATION
  Report Type: Spontaneous
  Country: US (occurrence: US)
  Receive Date: 20251023
  Receipt Date: 20251023
  Transmission Date: 20260117
  Serious: Yes (Other)
  Sender: RADIUS PHARM
  Company Number: US-RADIUS HEALTH INC.-US-RADIUS-25055756

PATIENT
  Sex: Female

DRUGS (20)
  1. TYMLOS [Suspect]
     Active Substance: ABALOPARATIDE
     Indication: Senile osteoporosis
     Dosage: 80 MICROGRAM, QD
     Route: 058
     Dates: start: 20251008
  2. AMOXICILLIN [Concomitant]
     Active Substance: AMOXICILLIN
     Indication: Product used for unknown indication
  3. BIOTIN [Concomitant]
     Active Substance: BIOTIN
     Indication: Product used for unknown indication
  4. CALCIUM MAGNESIUM [CALCIUM;MAGNESIUM] [Concomitant]
     Indication: Product used for unknown indication
     Dosage: 333-133
  5. CLONAZEPAM [Concomitant]
     Active Substance: CLONAZEPAM
     Indication: Product used for unknown indication
  6. CLONIDINE HYDROCHLORIDE [Concomitant]
     Active Substance: CLONIDINE HYDROCHLORIDE
     Indication: Product used for unknown indication
  7. COLACE [Concomitant]
     Active Substance: DOCUSATE SODIUM
     Indication: Product used for unknown indication
  8. DICYCLOMINE [Concomitant]
     Active Substance: DICYCLOMINE HYDROCHLORIDE
     Indication: Product used for unknown indication
  9. DILTIAZEM HYDROCHLORIDE [Concomitant]
     Active Substance: DILTIAZEM HYDROCHLORIDE
     Indication: Product used for unknown indication
  10. FOLIC ACID [Concomitant]
     Active Substance: FOLIC ACID
     Indication: Product used for unknown indication
  11. HUMIRA [Concomitant]
     Active Substance: ADALIMUMAB
     Indication: Product used for unknown indication
  12. LEFLUNOMIDE [Concomitant]
     Active Substance: LEFLUNOMIDE
     Indication: Product used for unknown indication
  13. NEBIVOLOL [Concomitant]
     Active Substance: NEBIVOLOL
     Indication: Product used for unknown indication
  14. OLMESARTAN MEDOXOMIL [Concomitant]
     Active Substance: OLMESARTAN MEDOXOMIL
     Indication: Product used for unknown indication
  15. ROPINIROLE HYDROCHLORIDE [Concomitant]
     Active Substance: ROPINIROLE HYDROCHLORIDE
     Indication: Product used for unknown indication
  16. ROPINIROLE HYDROCHLORIDE [Concomitant]
     Active Substance: ROPINIROLE HYDROCHLORIDE
     Indication: Product used for unknown indication
  17. VENLAFAXINE [Concomitant]
     Active Substance: VENLAFAXINE HYDROCHLORIDE
     Indication: Product used for unknown indication
  18. VITAMIN B COMPLEX [Concomitant]
     Active Substance: CYANOCOBALAMIN\DEXPANTHENOL\NIACINAMIDE\PYRIDOXINE HYDROCHLORIDE\RIBOFLAVIN 5^-PHOSPHATE SODIUM\THIA
     Indication: Product used for unknown indication
  19. VITAMIN D NOS [Concomitant]
     Active Substance: CHOLECALCIFEROL\ERGOCALCIFEROL
     Indication: Product used for unknown indication
  20. ZYRTEC [Concomitant]
     Active Substance: CETIRIZINE HYDROCHLORIDE
     Indication: Product used for unknown indication

REACTIONS (4)
  - Mitral valve stenosis [Not Recovered/Not Resolved]
  - Aortic stenosis [Not Recovered/Not Resolved]
  - Sciatica [Not Recovered/Not Resolved]
  - Back pain [Not Recovered/Not Resolved]
